FAERS Safety Report 6863595-4 (Version None)
Quarter: 2010Q3

REPORT INFORMATION
  Report Type: 
  Country: None (occurrence: None)
  Receive Date: 20100720
  Receipt Date: 20100714
  Transmission Date: 20110219
  Serious: Yes (Death)
  Sender: FDA-Public Use
  Company Number: 2010SP038904

PATIENT
  Age: 55 Year
  Sex: Female

DRUGS (1)
  1. TEMODAR [Suspect]
     Indication: NERVOUS SYSTEM DISORDER

REACTIONS (2)
  - BRAIN NEOPLASM MALIGNANT [None]
  - DISEASE COMPLICATION [None]
